FAERS Safety Report 9655253 (Version 1)
Quarter: 2013Q4

REPORT INFORMATION
  Report Type: Spontaneous
  Country: US (occurrence: US)
  Receive Date: 20131029
  Receipt Date: 20131029
  Transmission Date: 20140711
  Serious: No
  Sender: FDA-Public Use
  Company Number: US-PURDUE-USA-2012-0087016

PATIENT
  Sex: Male

DRUGS (4)
  1. OXYCONTIN (NDA 22-272) [Suspect]
     Indication: BACK PAIN
     Dosage: 20 MG, Q12H
  2. OXYCONTIN (NDA 22-272) [Suspect]
     Dosage: 40 MG, Q12H
  3. OXYCONTIN (NDA 22-272) [Suspect]
     Dosage: 40 MG, Q8H
  4. OXYCODONE HCL CR TABLETS (SIMILAR TO NDA 20-553) [Concomitant]
     Indication: PRODUCT USED FOR UNKNOWN INDICATION
     Dosage: UNK, Q8H

REACTIONS (11)
  - Blood pressure increased [Unknown]
  - Heart rate increased [Unknown]
  - Chest pain [Unknown]
  - Flushing [Unknown]
  - Paraesthesia [Unknown]
  - Dyspnoea [Unknown]
  - Dry mouth [Unknown]
  - Headache [Unknown]
  - Chills [Unknown]
  - Hot flush [Unknown]
  - Hyperhidrosis [Unknown]
